FAERS Safety Report 22164343 (Version 1)
Quarter: 2023Q2

REPORT INFORMATION
  Report Type: Spontaneous
  Country: US (occurrence: US)
  Receive Date: 20230403
  Receipt Date: 20230403
  Transmission Date: 20230721
  Serious: Yes (Other)
  Sender: FDA-Public Use
  Company Number: US-BAXTER-2023BAX016932

PATIENT
  Sex: Female

DRUGS (1)
  1. POTASSIUM CHLORIDE [Suspect]
     Active Substance: POTASSIUM CHLORIDE
     Indication: Diabetic ketoacidosis
     Dosage: (HIGHLY CONCENTRATED)
     Route: 042

REACTIONS (5)
  - Blood potassium decreased [Recovered/Resolved]
  - Device delivery system issue [Unknown]
  - Device issue [Unknown]
  - Device alarm issue [Unknown]
  - Device information output issue [Unknown]
